FAERS Safety Report 9893063 (Version 2)
Quarter: 2015Q1

REPORT INFORMATION
  Report Type: Report from Study
  Country: US (occurrence: US)
  Receive Date: 20140213
  Receipt Date: 20150326
  Transmission Date: 20150721
  Serious: Yes (Death, Other)
  Sender: FDA-Public Use
  Company Number: US-ROCHE-1321675

PATIENT
  Sex: Female
  Weight: 171.4 kg

DRUGS (28)
  1. AVASTIN [Suspect]
     Active Substance: BEVACIZUMAB
     Indication: OVARIAN CANCER
     Dosage: ON 11/MAR/2009, 25/MAR/2009, 08/APR/2009 , 20/JUL/2011, 12/AUG/2009 AND 29/SEP/2009 THE PATIENT RECE
     Route: 042
     Dates: start: 20110225
  2. DOCUSATE SODIUM. [Concomitant]
     Active Substance: DOCUSATE SODIUM
     Route: 048
  3. ZYRTEC [Concomitant]
     Active Substance: CETIRIZINE HYDROCHLORIDE
     Route: 048
  4. LEVAQUIN [Concomitant]
     Active Substance: LEVOFLOXACIN
     Indication: INFECTION
     Route: 048
     Dates: start: 20110526, end: 20110601
  5. GEMCITABINE [Concomitant]
     Active Substance: GEMCITABINE\GEMCITABINE HYDROCHLORIDE
     Route: 065
  6. CARBOPLATIN. [Concomitant]
     Active Substance: CARBOPLATIN
     Route: 065
  7. PROCHLORPERAZINE MALEATE. [Concomitant]
     Active Substance: PROCHLORPERAZINE MALEATE
     Dosage: TAKE 1 EVERY 4-6 HOURS AS NEEDED FOR NAUSEA
     Route: 048
  8. BELLADONNA/OPIUM, POWDERED [Concomitant]
     Dosage: TAKE ONE QID PRN
     Route: 054
  9. IBUPROFEN. [Concomitant]
     Active Substance: IBUPROFEN
     Dosage: AS NEEDED
     Route: 048
  10. DOCETAXEL. [Concomitant]
     Active Substance: DOCETAXEL
  11. DOXIL [Concomitant]
     Active Substance: DOXORUBICIN HYDROCHLORIDE
     Route: 065
  12. AMLODIPINE BESYLATE. [Concomitant]
     Active Substance: AMLODIPINE BESYLATE
     Dosage: TAKE 0.5 DAILY
     Route: 048
  13. GEMCITABINE [Concomitant]
     Active Substance: GEMCITABINE\GEMCITABINE HYDROCHLORIDE
     Route: 065
  14. ACETAMINOPHEN. [Concomitant]
     Active Substance: ACETAMINOPHEN
     Dosage: 1-2 TABLETS EVERY 4 HOURS AS NEEDED
     Route: 048
  15. DEXAMETHASONE. [Concomitant]
     Active Substance: DEXAMETHASONE
     Route: 065
  16. LORAZEPAM. [Concomitant]
     Active Substance: LORAZEPAM
     Dosage: 1-2 TABS Q HRS AS NEEDED
     Route: 048
  17. TYLENOL [Concomitant]
     Active Substance: ACETAMINOPHEN
     Route: 048
  18. MACRODANTIN [Concomitant]
     Active Substance: NITROFURANTOIN
     Dosage: AT HS
     Route: 048
  19. PRILOSEC [Concomitant]
     Active Substance: OMEPRAZOLE MAGNESIUM
     Route: 048
  20. CARBOPLATIN. [Concomitant]
     Active Substance: CARBOPLATIN
     Route: 065
  21. TRIAMCINOLONE [Concomitant]
     Active Substance: TRIAMCINOLONE
     Dosage: 1 APPLCATION TOPICAL BID
     Route: 061
  22. GRANISETRON [Concomitant]
     Active Substance: GRANISETRON
     Route: 065
  23. ETOPOSIDE. [Suspect]
     Active Substance: ETOPOSIDE
     Indication: PRODUCT USED FOR UNKNOWN INDICATION
     Dosage: EVERY OTHER DAY FOR 21 DAYS
     Route: 048
  24. ETOPOSIDE. [Suspect]
     Active Substance: ETOPOSIDE
     Dosage: ALTERNATE DAYS (EVERY OTHER DAY)
     Route: 048
  25. BENICAR [Concomitant]
     Active Substance: OLMESARTAN MEDOXOMIL
     Route: 048
  26. AMLODIPINE BESYLATE. [Concomitant]
     Active Substance: AMLODIPINE BESYLATE
     Route: 048
  27. MUCINEX D [Concomitant]
     Active Substance: GUAIFENESIN\PSEUDOEPHEDRINE HYDROCHLORIDE
     Route: 048
  28. GEMCITABINE [Concomitant]
     Active Substance: GEMCITABINE\GEMCITABINE HYDROCHLORIDE
     Route: 065

REACTIONS (18)
  - Nausea [Unknown]
  - Product use issue [Unknown]
  - Haematuria [Unknown]
  - Constipation [Unknown]
  - Death [Fatal]
  - Anaemia [Unknown]
  - Vaginal haemorrhage [Unknown]
  - Fatigue [Unknown]
  - Bladder disorder [Unknown]
  - Metastases to liver [Unknown]
  - Flatulence [Unknown]
  - Back pain [Unknown]
  - Paraesthesia [Unknown]
  - Arthralgia [Unknown]
  - Thrombocytopenia [Unknown]
  - Decreased appetite [Unknown]
  - Alopecia [Unknown]
  - Neuropathy peripheral [Unknown]
